FAERS Safety Report 7312276-1 (Version None)
Quarter: 2011Q1

REPORT INFORMATION
  Report Type: 
  Country: None (occurrence: None)
  Receive Date: 20110224
  Receipt Date: 20110215
  Transmission Date: 20110831
  Serious: Yes (Hospitalization)
  Sender: FDA-Public Use
  Company Number: B0677934A

PATIENT
  Age: 48 Year
  Sex: Male
  Weight: 100.9 kg

DRUGS (7)
  1. DARUNAVIR ETHANOLATE [Concomitant]
     Indication: HIV INFECTION
     Dosage: 300MG PER DAY
     Dates: start: 20090708
  2. PREDNISONE [Concomitant]
     Indication: MYOPATHY
     Route: 048
     Dates: start: 20040101
  3. TESTIM [Concomitant]
     Indication: HYPOGONADISM
     Dates: start: 20041012
  4. RALTEGRAVIR [Concomitant]
     Indication: HIV INFECTION
     Dosage: 400MG PER DAY
     Dates: start: 20090708
  5. MARAVIROC [Suspect]
     Indication: HIV INFECTION
     Dosage: 1TAB PER DAY
     Route: 048
     Dates: start: 20090708, end: 20100831
  6. RITONAVIR [Concomitant]
     Indication: HIV INFECTION
     Dosage: 100MG PER DAY
     Dates: start: 20090708
  7. PROTONIX [Concomitant]
     Indication: GASTROOESOPHAGEAL REFLUX DISEASE
     Dates: start: 20091019

REACTIONS (2)
  - DEEP VEIN THROMBOSIS [None]
  - PULMONARY EMBOLISM [None]
